FAERS Safety Report 15679671 (Version 1)
Quarter: 2018Q4

REPORT INFORMATION
  Report Type: Report from Study
  Country: DE (occurrence: DE)
  Receive Date: 20181203
  Receipt Date: 20181203
  Transmission Date: 20190205
  Serious: Yes (Hospitalization)
  Sender: FDA-Public Use
  Company Number: DE-ROCHE-2222276

PATIENT
  Sex: Female
  Weight: 62 kg

DRUGS (1)
  1. OCRELIZUMAB. [Suspect]
     Active Substance: OCRELIZUMAB
     Indication: MULTIPLE SCLEROSIS
     Dosage: DATE OF MOSTRECENT DOSE: 12/APR/2018
     Route: 042
     Dates: start: 20180328

REACTIONS (1)
  - Gastric ulcer [Not Recovered/Not Resolved]
